FAERS Safety Report 21891806 (Version 1)
Quarter: 2023Q1

REPORT INFORMATION
  Report Type: Spontaneous
  Country: FR (occurrence: FR)
  Receive Date: 20230120
  Receipt Date: 20230120
  Transmission Date: 20230417
  Serious: Yes (Disabling, Other)
  Sender: FDA-Public Use
  Company Number: FR-BAXTER-2022BAX026244

PATIENT
  Age: 74 Year
  Sex: Male

DRUGS (3)
  1. BORTEZOMIB [Suspect]
     Active Substance: BORTEZOMIB
     Indication: Product used for unknown indication
     Dosage: UNK, 1.8 MG/DOSE 1 DOSE(S)/WEEK 4 WEEK(S)/CYCLE
     Route: 065
     Dates: end: 20180823
  2. DEXAMETHASONE [Suspect]
     Active Substance: DEXAMETHASONE
     Indication: Product used for unknown indication
     Dosage: UNK, 40 MG/DOSE 1 DOSE(S)/WEEK 4 WEEK(S)/CYCLE
     Route: 065
     Dates: end: 20180823
  3. CYCLOPHOSPHAMIDE [Suspect]
     Active Substance: CYCLOPHOSPHAMIDE
     Indication: Product used for unknown indication
     Dosage: UNK, 500 MG/DOSE 1 DOSE(S)/WEEK 3 WEEK(S)/CYCLE
     Route: 065
     Dates: end: 20180823

REACTIONS (1)
  - Neuropathy peripheral [Unknown]
